FAERS Safety Report 25359338 (Version 4)
Quarter: 2025Q3

REPORT INFORMATION
  Report Type: Spontaneous
  Country: EU (occurrence: EU)
  Receive Date: 20250526
  Receipt Date: 20250912
  Transmission Date: 20251021
  Serious: Yes (Life-Threatening, Hospitalization)
  Sender: TEVA
  Company Number: EU-TEVA-VS-3334697

PATIENT
  Age: 5 Year
  Sex: Male

DRUGS (6)
  1. BUSULFAN [Suspect]
     Active Substance: BUSULFAN
     Indication: Bone marrow conditioning regimen
     Route: 065
     Dates: start: 202204
  2. MILRINONE [Suspect]
     Active Substance: MILRINONE
     Indication: Pulmonary arterial hypertension
     Dosage: 0.5 MCG/KG/MIN
     Route: 065
     Dates: start: 20220611
  3. FUROSEMIDE [Suspect]
     Active Substance: FUROSEMIDE
     Indication: Pulmonary arterial hypertension
     Route: 065
     Dates: start: 20220611
  4. METHYLPREDNISOLONE [Suspect]
     Active Substance: METHYLPREDNISOLONE
     Indication: Pulmonary arterial hypertension
     Route: 065
     Dates: start: 20220611
  5. MELPHALAN [Concomitant]
     Active Substance: MELPHALAN
     Indication: Bone marrow conditioning regimen
     Route: 065
     Dates: start: 202204
  6. SILDENAFIL [Suspect]
     Active Substance: SILDENAFIL
     Indication: Pulmonary arterial hypertension
     Route: 065
     Dates: start: 20220611, end: 20240418

REACTIONS (9)
  - Pulmonary arterial hypertension [Recovering/Resolving]
  - Tricuspid valve incompetence [Recovered/Resolved]
  - Drug ineffective [Unknown]
  - Cardiomegaly [Recovered/Resolved]
  - Right ventricular dysfunction [Recovered/Resolved]
  - Cardiogenic shock [Recovering/Resolving]
  - Cardiac failure chronic [Recovering/Resolving]
  - Acute respiratory distress syndrome [Unknown]
  - Right ventricular failure [Recovering/Resolving]

NARRATIVE: CASE EVENT DATE: 20220101
